FAERS Safety Report 12661581 (Version 4)
Quarter: 2016Q3

REPORT INFORMATION
  Report Type: Spontaneous
  Country: US (occurrence: US)
  Receive Date: 20160817
  Receipt Date: 20160930
  Transmission Date: 20161109
  Serious: Yes (Death, Other)
  Sender: FDA-Public Use
  Company Number: US-PFIZER INC-2016298530

PATIENT
  Age: 42 Year
  Sex: Female

DRUGS (8)
  1. IBUPROFEN. [Concomitant]
     Active Substance: IBUPROFEN
     Indication: HEADACHE
     Dosage: 200 MG, DAILY
     Route: 048
     Dates: start: 20150826
  2. IBRANCE [Suspect]
     Active Substance: PALBOCICLIB
     Indication: BREAST CANCER FEMALE
     Dosage: 125 MG, CYCLIC (DAILY DAY 1-21 EVERY 28 DAYS)
     Route: 048
     Dates: start: 20160602
  3. LORAZEPAM. [Concomitant]
     Active Substance: LORAZEPAM
     Dosage: UNK UNK, AS NEEDED 0.5 MG; 1-2 TABLET / EVERY 4 HOURS)
     Route: 048
     Dates: start: 20160511
  4. FULVESTRANT [Concomitant]
     Active Substance: FULVESTRANT
     Dosage: UNK
  5. VITAMIN D3 [Concomitant]
     Active Substance: CHOLECALCIFEROL
     Dosage: 1 DF, DAILY (2000 UNIT DAILY (1 CAPSULE))
     Route: 048
  6. ANASTROZOLE. [Concomitant]
     Active Substance: ANASTROZOLE
     Dosage: 1 MG, DAILY
     Route: 048
     Dates: start: 20151029
  7. LACTASE [Concomitant]
     Active Substance: LACTASE
     Dosage: 1 DF, DAILY (3,000 UNIT TABLET 1 TAB DAILY)
     Route: 048
  8. POLYETHYLENE GLYCOL 3350. [Concomitant]
     Active Substance: POLYETHYLENE GLYCOL 3350
     Dosage: 17 G, AS NEEDED
     Route: 048

REACTIONS (2)
  - Neutropenia [Unknown]
  - Neoplasm progression [Fatal]
